FAERS Safety Report 7618694-6 (Version None)
Quarter: 2011Q3

REPORT INFORMATION
  Report Type: 
  Country: None (occurrence: None)
  Receive Date: 20110718
  Receipt Date: 20110708
  Transmission Date: 20111222
  Serious: Yes (Hospitalization)
  Sender: FDA-Public Use
  Company Number: US-ABBOTT-11P-163-0837351-00

PATIENT
  Sex: Female
  Weight: 69.008 kg

DRUGS (18)
  1. PRENATAL VITAMINS [Concomitant]
     Indication: PRODUCT USED FOR UNKNOWN INDICATION
     Route: 048
     Dates: start: 20070816
  2. AMOXICILLIN [Concomitant]
     Indication: SINUSITIS
     Route: 048
     Dates: start: 20080218, end: 20080225
  3. CALCIUM CARBONATE [Concomitant]
     Indication: DYSPEPSIA
     Dates: start: 20070801, end: 20080316
  4. HUMIRA [Suspect]
     Indication: RHEUMATOID ARTHRITIS
     Dates: start: 20071101
  5. OMNICEF [Concomitant]
     Indication: SINUSITIS
     Route: 048
     Dates: start: 20080207
  6. TYLENOL PM [Concomitant]
     Indication: INSOMNIA
     Dates: start: 20070703
  7. DEMEROL [Concomitant]
     Route: 042
     Dates: start: 20071123, end: 20071124
  8. ULTRAM [Concomitant]
     Indication: RHEUMATOID ARTHRITIS
     Route: 048
     Dates: start: 20070901
  9. PHENERGAN HCL [Concomitant]
     Indication: NAUSEA
     Route: 048
     Dates: start: 20070801, end: 20080131
  10. PRILOSEC [Concomitant]
     Indication: PRODUCT USED FOR UNKNOWN INDICATION
     Route: 048
     Dates: start: 20070703
  11. INFLUENZA VACCINE [Concomitant]
     Indication: PRODUCT USED FOR UNKNOWN INDICATION
     Dates: start: 20071031, end: 20071031
  12. ZYRTEC [Concomitant]
     Indication: HYPERSENSITIVITY
     Route: 048
     Dates: start: 20070703
  13. DEMEROL [Concomitant]
     Indication: NEPHROLITHIASIS
     Route: 048
     Dates: start: 20071122, end: 20071122
  14. DEPO-MEDROL [Concomitant]
     Route: 050
     Dates: start: 20080226, end: 20080226
  15. TYLENOL-500 [Concomitant]
     Indication: SINUS DISORDER
     Dates: start: 20070703
  16. DEPO-MEDROL [Concomitant]
     Indication: PAIN
     Route: 050
     Dates: start: 20071101, end: 20071101
  17. AMBIEN [Concomitant]
     Indication: INSOMNIA
     Route: 048
     Dates: start: 20070703
  18. VALTREX [Concomitant]
     Indication: HERPES SIMPLEX
     Route: 048
     Dates: start: 20080301

REACTIONS (3)
  - NEPHROLITHIASIS [None]
  - SINUSITIS [None]
  - HERPES SIMPLEX [None]
